FAERS Safety Report 21136961 (Version 5)
Quarter: 2025Q1

REPORT INFORMATION
  Report Type: Spontaneous
  Country: US (occurrence: US)
  Receive Date: 20220727
  Receipt Date: 20250311
  Transmission Date: 20250408
  Serious: Yes (Other)
  Sender: PFIZER
  Company Number: US-PFIZER INC-PV202200030190

PATIENT
  Age: 76 Year
  Sex: Female
  Weight: 56.689 kg

DRUGS (1)
  1. XELJANZ XR [Suspect]
     Active Substance: TOFACITINIB CITRATE
     Indication: Rheumatoid arthritis
     Dosage: 11 MG, 1X/DAY
     Route: 048

REACTIONS (3)
  - Macular degeneration [Unknown]
  - Chronic kidney disease [Unknown]
  - Aphonia [Not Recovered/Not Resolved]
